FAERS Safety Report 4947378-8 (Version None)
Quarter: 2006Q1

REPORT INFORMATION
  Report Type: 
  Country: None (occurrence: None)
  Receive Date: 20060317
  Receipt Date: 20051109
  Transmission Date: 20060701
  Serious: Yes (Hospitalization, Other)
  Sender: FDA-Public Use
  Company Number: US-MERCK-0511USA01890

PATIENT
  Age: 73 Year
  Sex: Female

DRUGS (1)
  1. VIOXX [Suspect]
     Indication: PAIN
     Route: 048

REACTIONS (8)
  - ANXIETY [None]
  - ARTERIOSCLEROSIS [None]
  - CAROTID ARTERY OCCLUSION [None]
  - CEREBROVASCULAR ACCIDENT [None]
  - MULTIPLE SCLEROSIS [None]
  - SPINAL COLUMN STENOSIS [None]
  - SPINAL OSTEOARTHRITIS [None]
  - TRANSIENT ISCHAEMIC ATTACK [None]
